FAERS Safety Report 7436760-5 (Version None)
Quarter: 2011Q2

REPORT INFORMATION
  Report Type: 
  Country: None (occurrence: None)
  Receive Date: 20110426
  Receipt Date: 20110419
  Transmission Date: 20111010
  Serious: No
  Sender: FDA-Public Use
  Company Number: US-B.I. PHARMACEUTICALS,INC./RIDGEFIELD-2011-BP-11203BP

PATIENT
  Age: 47 Year
  Sex: Female
  Weight: 81.2 kg

DRUGS (12)
  1. SINGULAIR [Concomitant]
  2. MEDICATION NOT FURTHER SPECIFIED [Concomitant]
  3. SPIRIVA [Suspect]
  4. AMBIEN CR [Concomitant]
  5. HYDROXYZINE [Concomitant]
  6. ALBUTEROL [Concomitant]
  7. PULMICORT [Concomitant]
  8. TRIAMTERENE AND HYDROCHLOROTHIAZIDE [Concomitant]
  9. DOXYCYCLINE [Concomitant]
  10. SYMBICORT [Concomitant]
  11. XOPENEX HFA [Suspect]
     Indication: ASTHMA
     Route: 055
  12. AMLODIPINE [Concomitant]

REACTIONS (2)
  - MALAISE [None]
  - MULTIPLE ALLERGIES [None]
